FAERS Safety Report 18699868 (Version 1)
Quarter: 2021Q1

REPORT INFORMATION
  Report Type: Spontaneous
  Country: US (occurrence: US)
  Receive Date: 20210104
  Receipt Date: 20210104
  Transmission Date: 20210419
  Serious: No
  Sender: FDA-Public Use
  Company Number: None

PATIENT
  Age: 10 Year
  Sex: Male

DRUGS (1)
  1. AFINITOR DISPERZ [Suspect]
     Active Substance: EVEROLIMUS
     Route: 048
     Dates: start: 202001

REACTIONS (3)
  - Wrong technique in product usage process [None]
  - Incorrect dose administered [None]
  - Product use issue [None]

NARRATIVE: CASE EVENT DATE: 20210101
